FAERS Safety Report 11840313 (Version 1)
Quarter: 2015Q4

REPORT INFORMATION
  Report Type: Spontaneous
  Country: US (occurrence: None)
  Receive Date: 20151215
  Receipt Date: 20151215
  Transmission Date: 20160305
  Serious: Yes (Hospitalization)
  Sender: FDA-Public Use
  Company Number: None

PATIENT
  Age: 48 Year
  Sex: Female
  Weight: 148 kg

DRUGS (5)
  1. HYDROCHLOROTHIAZIDE. [Concomitant]
     Active Substance: HYDROCHLOROTHIAZIDE
  2. LITHIUM CARBONATE. [Suspect]
     Active Substance: LITHIUM CARBONATE
     Indication: DEPRESSION
     Dosage: CHRONIC
     Route: 048
  3. ZIPRASIDONE. [Concomitant]
     Active Substance: ZIPRASIDONE
  4. OLMESARTAN [Concomitant]
     Active Substance: OLMESARTAN
  5. LITHIUM CARBONATE. [Suspect]
     Active Substance: LITHIUM CARBONATE
     Indication: SCHIZOPHRENIA
     Dosage: CHRONIC
     Route: 048

REACTIONS (11)
  - Pneumonia [None]
  - Pickwickian syndrome [None]
  - Respiratory failure [None]
  - Encephalopathy [None]
  - Acute kidney injury [None]
  - Seizure [None]
  - Toxicity to various agents [None]
  - Acute respiratory distress syndrome [None]
  - Dialysis [None]
  - Sleep apnoea syndrome [None]
  - Myoclonus [None]

NARRATIVE: CASE EVENT DATE: 20150727
